FAERS Safety Report 16583277 (Version 1)
Quarter: 2019Q3

REPORT INFORMATION
  Report Type: Spontaneous
  Country: DE (occurrence: DE)
  Receive Date: 20190717
  Receipt Date: 20190717
  Transmission Date: 20191004
  Serious: Yes (Hospitalization)
  Sender: FDA-Public Use
  Company Number: DE-PFIZER INC-2019299973

PATIENT
  Age: 68 Year
  Sex: Male
  Weight: 70 kg

DRUGS (14)
  1. AMLODIPINE BESILATE [Suspect]
     Active Substance: AMLODIPINE BESYLATE
     Dosage: 5 MG, 1X/DAY 1-0-0
     Route: 048
  2. FUROSEMID [Concomitant]
     Active Substance: FUROSEMIDE
     Dosage: 40 MG, 1X/DAY 1-0-0
     Route: 048
  3. NITROLINGUAL [Concomitant]
     Active Substance: NITROGLYCERIN
     Dosage: UNK, AS NEEDED AS AEROSOL
     Route: 048
  4. RISPERIDON [Concomitant]
     Active Substance: RISPERIDONE
     Dosage: 1 MG, 1X/DAY 0-0-1
     Route: 048
  5. BAYOTENSIN [Concomitant]
     Active Substance: NITRENDIPINE
     Dosage: UNK, AS NEEDED
     Route: 048
  6. ENALAPRIL [Suspect]
     Active Substance: ENALAPRIL
     Dosage: 10 MG, DAILY 0.5-0-0.5
     Route: 048
  7. MCP [METOCLOPRAMIDE HYDROCHLORIDE] [Concomitant]
     Dosage: UNK UNK, AS NEEDED
     Route: 048
  8. ALLOPURINOL. [Concomitant]
     Active Substance: ALLOPURINOL
     Dosage: 100 MG, 1X/DAY 0-1-0
     Route: 048
  9. BISOPROLOL FUMARATE. [Suspect]
     Active Substance: BISOPROLOL FUMARATE
     Dosage: 2.5 MG, 2X/DAY 1-0-1
     Route: 048
  10. BOSUTINIB [Concomitant]
     Active Substance: BOSUTINIB
     Dosage: 100 MG, 3X/DAY 3-0-0
     Route: 048
  11. ISDN [Concomitant]
     Dosage: 60 MG, 1X/DAY 0-1-0
     Route: 048
  12. CLOPIDOGREL [Concomitant]
     Active Substance: CLOPIDOGREL BISULFATE
     Dosage: 75 MG, 1X/DAY 0-1-0
     Route: 048
  13. SIMVASTATIN. [Concomitant]
     Active Substance: SIMVASTATIN
     Dosage: 20 MG, 1X/DAY 0-0-1
     Route: 048
  14. PREDNISOLON [PREDNISOLONE] [Concomitant]
     Active Substance: PREDNISOLONE
     Dosage: 20 MG, 1X/DAY 1-0-0
     Route: 048

REACTIONS (4)
  - Hypotension [Unknown]
  - Pleural effusion [Unknown]
  - Chest pain [Unknown]
  - Syncope [Unknown]
